FAERS Safety Report 4890869-9 (Version None)
Quarter: 2006Q1

REPORT INFORMATION
  Report Type: 
  Country: None (occurrence: None)
  Receive Date: 20060125
  Receipt Date: 20060116
  Transmission Date: 20060701
  Serious: Yes (Hospitalization)
  Sender: FDA-Public Use
  Company Number: PHEH2006US01013

PATIENT
  Age: 75 Year
  Sex: Female
  Weight: 97.505 kg

DRUGS (3)
  1. DIOVAN [Suspect]
     Indication: HYPERTENSION
     Route: 048
     Dates: start: 20051003, end: 20060102
  2. CLONIDINE [Concomitant]
  3. THYROID PREPARATIONS [Concomitant]

REACTIONS (2)
  - DRUG INEFFECTIVE [None]
  - THYROIDECTOMY [None]
